FAERS Safety Report 16749065 (Version 1)
Quarter: 2019Q3

REPORT INFORMATION
  Report Type: Other
  Country: GB (occurrence: GB)
  Receive Date: 20190828
  Receipt Date: 20190828
  Transmission Date: 20191005
  Serious: Yes (Death, Other)
  Sender: FDA-Public Use
  Company Number: GB-EMCURE PHARMACEUTICALS LTD-2019-EPL-0584

PATIENT
  Age: 89 Year
  Sex: Female
  Weight: 41 kg

DRUGS (7)
  1. GABAPENTIN. [Concomitant]
     Active Substance: GABAPENTIN
  2. EVACAL D3 [Concomitant]
     Dosage: CHEWABLE
  3. SERTRALINE HYDROCHLORIDE. [Suspect]
     Active Substance: SERTRALINE HYDROCHLORIDE
     Indication: DEPRESSION
     Dosage: 50 MILLIGRAM
     Route: 048
     Dates: start: 20190728, end: 20190729
  4. NITRAZEPAM [Concomitant]
     Active Substance: NITRAZEPAM
  5. RANITIDINE. [Concomitant]
     Active Substance: RANITIDINE
  6. DOMPERIDONE [Concomitant]
     Active Substance: DOMPERIDONE
  7. PARACETAMOL [Concomitant]
     Active Substance: ACETAMINOPHEN

REACTIONS (5)
  - Vomiting [Not Recovered/Not Resolved]
  - Cardiac arrest [Fatal]
  - Dehydration [Not Recovered/Not Resolved]
  - Blood potassium decreased [Not Recovered/Not Resolved]
  - Retching [Not Recovered/Not Resolved]

NARRATIVE: CASE EVENT DATE: 201907
